FAERS Safety Report 9726792 (Version 1)
Quarter: 2013Q4

REPORT INFORMATION
  Report Type: Spontaneous
  Country: US (occurrence: US)
  Receive Date: 20131203
  Receipt Date: 20131203
  Transmission Date: 20140711
  Serious: No
  Sender: FDA-Public Use
  Company Number: US-NOVEN-13US006250

PATIENT
  Sex: Male

DRUGS (4)
  1. FENTANYL [Suspect]
     Indication: LYMPH NODE PAIN
     Dosage: 50 UG/HR, UNK
     Route: 062
  2. NORCO [Concomitant]
     Indication: BREAKTHROUGH PAIN
  3. COMPLERA [Concomitant]
     Indication: ANTIVIRAL TREATMENT
  4. PROMETHAZINE [Concomitant]

REACTIONS (2)
  - Drug effect increased [Recovered/Resolved]
  - Drug administration error [Recovered/Resolved]
